FAERS Safety Report 25279659 (Version 1)
Quarter: 2025Q2

REPORT INFORMATION
  Report Type: Spontaneous
  Country: US (occurrence: US)
  Receive Date: 20250507
  Receipt Date: 20250507
  Transmission Date: 20250717
  Serious: No
  Sender: PFIZER
  Company Number: US-PFIZER INC-202500095819

PATIENT
  Age: 24 Year
  Sex: Female
  Weight: 90.72 kg

DRUGS (3)
  1. AZITHROMYCIN [Suspect]
     Active Substance: AZITHROMYCIN
     Indication: Pyrexia
     Dates: start: 20240603, end: 20240604
  2. AZITHROMYCIN [Suspect]
     Active Substance: AZITHROMYCIN
     Indication: Oropharyngeal pain
  3. AZITHROMYCIN [Suspect]
     Active Substance: AZITHROMYCIN
     Indication: Pharyngitis streptococcal

REACTIONS (9)
  - Hypersensitivity [Unknown]
  - Rash papular [Unknown]
  - Burning sensation [Unknown]
  - Mental status changes [Unknown]
  - Peripheral swelling [Unknown]
  - Onycholysis [Unknown]
  - Blister [Unknown]
  - Wound [Unknown]
  - Gait disturbance [Unknown]

NARRATIVE: CASE EVENT DATE: 20240603
